FAERS Safety Report 6746405-5 (Version None)
Quarter: 2010Q2

REPORT INFORMATION
  Report Type: 
  Country: None (occurrence: None)
  Receive Date: 20100528
  Receipt Date: 20100519
  Transmission Date: 20101027
  Serious: Yes (Hospitalization)
  Sender: FDA-Public Use
  Company Number: JP-ROCHE-681254

PATIENT
  Sex: Male
  Weight: 56.1 kg

DRUGS (13)
  1. XELODA [Suspect]
     Indication: RECTAL CANCER
     Dosage: DRUG NAME: XELODA 300 (CAPECITABINE).2 WEEKS ADMINISTRATION FOLLOWED BY 1WEEK REST.
     Route: 048
     Dates: start: 20100113, end: 20100118
  2. PYDOXAL [Concomitant]
     Route: 048
     Dates: start: 20100113, end: 20100118
  3. HIRUDOID [Concomitant]
     Dosage: DOSE FORM: OINTMENT AND CREAM. DOSAGE IS UNCERTAIN.
     Route: 062
     Dates: start: 20100113, end: 20100118
  4. BONDORMIN [Concomitant]
     Dosage: DRUG: BROTIZOLAM OD(BROTIZOLAM).
     Route: 048
     Dates: start: 20100114, end: 20100118
  5. GOSHAJINKIGAN [Concomitant]
     Dosage: DRUG: GOSHA-JINKI-GAN
     Route: 048
     Dates: start: 20100115, end: 20100118
  6. PARIET [Concomitant]
     Dosage: DRUG: SODIUM RABEPRAZOLE
     Route: 048
     Dates: start: 20100117, end: 20100118
  7. PROCHLORPERAZINE [Concomitant]
     Dosage: DRUG: PROCHLORPERAZINE MALEATE
     Route: 048
     Dates: start: 20100118, end: 20100118
  8. CYANOCOBALAMIN [Concomitant]
     Indication: HYPOAESTHESIA
     Route: 048
     Dates: start: 20091209, end: 20100118
  9. WARFARIN POTASSIUM [Concomitant]
     Indication: DEEP VEIN THROMBOSIS
     Dosage: DRUG: WARFARIN K
     Route: 048
     Dates: start: 20091116, end: 20100114
  10. LORFENAMIN [Concomitant]
     Indication: PAIN
     Dosage: DRUG: LOXOPROFEN SODIUM
     Route: 048
     Dates: start: 20091115, end: 20100118
  11. SELBEX [Concomitant]
     Indication: PAIN
     Route: 048
     Dates: start: 20091115, end: 20100118
  12. PELTAZON [Concomitant]
     Indication: PAIN
     Route: 048
     Dates: start: 20091220, end: 20091227
  13. PELTAZON [Concomitant]
     Dosage: DRUG:PENTAZOCINE HYDROCHLORIDE
     Route: 048
     Dates: start: 20091228, end: 20100117

REACTIONS (5)
  - DECREASED APPETITE [None]
  - DYSPEPSIA [None]
  - HYPOAESTHESIA [None]
  - LEUKOENCEPHALOPATHY [None]
  - NAUSEA [None]
